FAERS Safety Report 18033527 (Version 5)
Quarter: 2021Q1

REPORT INFORMATION
  Report Type: Spontaneous
  Country: US (occurrence: US)
  Receive Date: 20200717
  Receipt Date: 20210315
  Transmission Date: 20210419
  Serious: Yes (Other)
  Sender: FDA-Public Use
  Company Number: US-BEH-2020120053

PATIENT
  Age: 45 Year
  Sex: Female

DRUGS (3)
  1. HAEGARDA [Suspect]
     Active Substance: HUMAN C1-ESTERASE INHIBITOR
     Indication: HEREDITARY ANGIOEDEMA
     Dosage: 4000 INTERNATIONAL UNIT, EVERY THREE TO FOUR DAYS
     Route: 058
     Dates: start: 20190103
  2. HAEGARDA [Suspect]
     Active Substance: HUMAN C1-ESTERASE INHIBITOR
     Indication: HEREDITARY ANGIOEDEMA
     Dosage: 4000 INTERNATIONAL UNIT, EVERY THREE TO FOUR DAYS
     Route: 058
     Dates: start: 20180103
  3. HAEGARDA [Suspect]
     Active Substance: HUMAN C1-ESTERASE INHIBITOR
     Indication: PROPHYLAXIS
     Dosage: 4000 INTERNATIONAL UNIT, EVERY THREE TO FOUR DAYS
     Route: 058
     Dates: start: 20190104

REACTIONS (11)
  - Product use in unapproved indication [Unknown]
  - Insurance issue [Unknown]
  - No adverse event [Unknown]
  - Hereditary angioedema [Unknown]
  - No adverse event [Unknown]
  - Hereditary angioedema [Unknown]
  - Hereditary angioedema [Recovering/Resolving]
  - Pain [Recovering/Resolving]
  - Hereditary angioedema [Recovered/Resolved]
  - Hereditary angioedema [Unknown]
  - Product dose omission issue [Unknown]

NARRATIVE: CASE EVENT DATE: 20200614
